FAERS Safety Report 23771498 (Version 1)
Quarter: 2024Q2

REPORT INFORMATION
  Report Type: Spontaneous
  Country: NL (occurrence: NL)
  Receive Date: 20240423
  Receipt Date: 20240423
  Transmission Date: 20240716
  Serious: Yes (Other)
  Sender: FDA-Public Use
  Company Number: NL-LRB-00944204

PATIENT
  Age: 79 Year
  Sex: Male
  Weight: 78 kg

DRUGS (1)
  1. ATORVASTATIN [Suspect]
     Active Substance: ATORVASTATIN
     Indication: Myocardial infarction
     Dosage: 1X PER DAY 1 PIECE
     Route: 065
     Dates: start: 20231120, end: 20240119

REACTIONS (2)
  - Deafness unilateral [Recovered/Resolved]
  - Muscle spasms [Recovered/Resolved]
